FAERS Safety Report 8799004 (Version 2)
Quarter: 2012Q4

REPORT INFORMATION
  Report Type: 
  Country: ZA (occurrence: ZA)
  Receive Date: 20120920
  Receipt Date: 20121008
  Transmission Date: 20130627
  Serious: Yes (Death, Hospitalization, Congenital Anomaly, Other)
  Sender: FDA-Public Use
  Company Number: ZA-NOVOPROD-359693

PATIENT
  Sex: Female
  Weight: 4 kg

DRUGS (4)
  1. NOVOMIX 30 FLEXPEN [Suspect]
     Indication: GESTATIONAL DIABETES
     Dosage: 30 IU, qd
     Route: 064
  2. NOVOMIX 30 FLEXPEN [Suspect]
     Indication: GESTATIONAL DIABETES
     Dosage: 30 IU, qd
     Route: 064
  3. NOVOMIX 30 FLEXPEN [Suspect]
     Dosage: 30 IU, qd
     Route: 063
     Dates: end: 20120811
  4. NOVOMIX 30 FLEXPEN [Suspect]
     Dosage: 30 IU, qd
     Route: 063
     Dates: end: 20120811

REACTIONS (4)
  - Cardiomegaly [Fatal]
  - Infantile apnoeic attack [Unknown]
  - Jaundice neonatal [Unknown]
  - Foetal exposure during pregnancy [Unknown]
